FAERS Safety Report 8978826 (Version 1)
Quarter: 2012Q4

REPORT INFORMATION
  Report Type: Report from Study
  Country: DE (occurrence: DE)
  Receive Date: 20121220
  Receipt Date: 20121220
  Transmission Date: 20130627
  Serious: Yes (Death)
  Sender: FDA-Public Use
  Company Number: DE-CELGENEUS-062-21660-12114030

PATIENT
  Age: 72 Year
  Sex: Female

DRUGS (1)
  1. ABRAXANE [Suspect]
     Indication: METASTATIC BREAST CANCER
     Route: 065
     Dates: start: 20120316, end: 20120426

REACTIONS (2)
  - Death [Fatal]
  - Neutropenia [Recovered/Resolved]
